FAERS Safety Report 21292947 (Version 1)
Quarter: 2022Q3

REPORT INFORMATION
  Report Type: Spontaneous
  Country: US (occurrence: US)
  Receive Date: 20220905
  Receipt Date: 20220905
  Transmission Date: 20221026
  Serious: Yes (Other)
  Sender: FDA-Public Use
  Company Number: US-SA-SAC20220902000290

PATIENT
  Sex: Female

DRUGS (3)
  1. ZANTAC [Suspect]
     Active Substance: RANITIDINE HYDROCHLORIDE
     Dosage: OVER THE COUNTER ZANTAC FROM APPROXIMATELY 1996 TO 2019;
     Route: 048
     Dates: start: 1996, end: 2019
  2. ZANTAC [Suspect]
     Active Substance: RANITIDINE HYDROCHLORIDE
     Dosage: PRESCRIPTION ZANTAC FROM APPROXIMATELY 1996 TO 2019;
     Route: 048
     Dates: start: 1996, end: 2019
  3. RANITIDINE HYDROCHLORIDE [Suspect]
     Active Substance: RANITIDINE HYDROCHLORIDE
     Dosage: PRESCRIPTION RANITIDINE FROM APPROXIMATELY 1997 TO 2019
     Route: 048
     Dates: start: 1997, end: 2019

REACTIONS (3)
  - Breast cancer [Unknown]
  - Colorectal cancer [Unknown]
  - Ovarian cancer [Unknown]
